FAERS Safety Report 13690351 (Version 1)
Quarter: 2017Q2

REPORT INFORMATION
  Report Type: Spontaneous
  Country: US (occurrence: US)
  Receive Date: 20170626
  Receipt Date: 20170626
  Transmission Date: 20170830
  Serious: Yes (Other)
  Sender: FDA-Public Use
  Company Number: US-JNJFOC-20170623162

PATIENT
  Sex: Female
  Weight: 113 kg

DRUGS (3)
  1. PREDNISONE. [Concomitant]
     Active Substance: PREDNISONE
  2. IMBRUVICA [Suspect]
     Active Substance: IBRUTINIB
     Indication: PRODUCT USED FOR UNKNOWN INDICATION
     Route: 048
     Dates: start: 20170314, end: 201706
  3. LEVOFLOXACIN. [Concomitant]
     Active Substance: LEVOFLOXACIN

REACTIONS (1)
  - Pericardial effusion [Unknown]

NARRATIVE: CASE EVENT DATE: 2017
